FAERS Safety Report 14604552 (Version 1)
Quarter: 2018Q1

REPORT INFORMATION
  Report Type: Spontaneous
  Country: GB (occurrence: GB)
  Receive Date: 20180306
  Receipt Date: 20180306
  Transmission Date: 20180509
  Serious: Yes (Hospitalization)
  Sender: FDA-Public Use
  Company Number: GB-PFIZER INC-2018092181

PATIENT
  Age: 73 Year

DRUGS (8)
  1. DOXAZOSIN [Concomitant]
     Active Substance: DOXAZOSIN\DOXAZOSIN MESYLATE
     Dosage: UNK
  2. BUMETANIDE. [Suspect]
     Active Substance: BUMETANIDE
     Dosage: 2 MG, DAILY
     Route: 048
  3. RAMIPRIL. [Suspect]
     Active Substance: RAMIPRIL
     Dosage: 10 MG, DAILY
     Route: 048
  4. DOCUSATE [Concomitant]
     Active Substance: DOCUSATE
     Dosage: UNK
  5. DIGOXIN. [Concomitant]
     Active Substance: DIGOXIN
     Dosage: UNK
  6. METFORMIN [Suspect]
     Active Substance: METFORMIN HYDROCHLORIDE
     Dosage: 2250 MG, DAILY
     Route: 048
     Dates: end: 20171024
  7. ATORVASTATIN [Concomitant]
     Active Substance: ATORVASTATIN
     Dosage: UNK
  8. MOXONIDINE [Concomitant]
     Active Substance: MOXONIDINE
     Dosage: UNK

REACTIONS (2)
  - Lower respiratory tract infection [Unknown]
  - Acute kidney injury [Recovered/Resolved]

NARRATIVE: CASE EVENT DATE: 20171024
